FAERS Safety Report 9658068 (Version 1)
Quarter: 2013Q4

REPORT INFORMATION
  Report Type: Spontaneous
  Country: US (occurrence: US)
  Receive Date: 20131030
  Receipt Date: 20131030
  Transmission Date: 20140711
  Serious: No
  Sender: FDA-Public Use
  Company Number: US-009507513-1310USA014328

PATIENT
  Sex: Female

DRUGS (2)
  1. MIRALAX [Suspect]
     Indication: PRODUCT USED FOR UNKNOWN INDICATION
     Dosage: 8.5 G, ONCE
     Route: 048
     Dates: start: 20131018
  2. MIRALAX [Suspect]
     Dosage: 17 G, ONCE
     Route: 048
     Dates: start: 20131017

REACTIONS (2)
  - Diarrhoea [Not Recovered/Not Resolved]
  - Underdose [Unknown]
